FAERS Safety Report 10249984 (Version 2)
Quarter: 2014Q2

REPORT INFORMATION
  Report Type: Spontaneous
  Country: JP (occurrence: JP)
  Receive Date: 20140620
  Receipt Date: 20140626
  Transmission Date: 20141212
  Serious: Yes (Other)
  Sender: FDA-Public Use
  Company Number: JP-PFIZER INC-2014165091

PATIENT
  Sex: Female

DRUGS (1)
  1. CELECOX [Suspect]
     Indication: OSTEOARTHRITIS
     Dosage: 200 MG, DAILY
     Route: 048
     Dates: start: 201406, end: 201406

REACTIONS (2)
  - Rash [Recovering/Resolving]
  - Erythema [Recovering/Resolving]
